FAERS Safety Report 14574274 (Version 1)
Quarter: 2018Q1

REPORT INFORMATION
  Report Type: Spontaneous
  Country: US (occurrence: US)
  Receive Date: 20180226
  Receipt Date: 20180226
  Transmission Date: 20180509
  Serious: Yes (Life-Threatening, Hospitalization)
  Sender: FDA-Public Use
  Company Number: US-INTERCEPT-PMOCA2018000254

PATIENT

DRUGS (1)
  1. OCALIVA [Suspect]
     Active Substance: OBETICHOLIC ACID
     Indication: PRIMARY BILIARY CHOLANGITIS
     Dosage: 10 MG, QD
     Route: 048
     Dates: start: 201701, end: 20180115

REACTIONS (4)
  - Blood albumin decreased [Unknown]
  - Body temperature increased [Unknown]
  - Haemoglobin decreased [Unknown]
  - Parvovirus infection [Unknown]

NARRATIVE: CASE EVENT DATE: 2018
